FAERS Safety Report 9721897 (Version 2)
Quarter: 2013Q4

REPORT INFORMATION
  Report Type: Spontaneous
  Country: CA (occurrence: CA)
  Receive Date: 20131201
  Receipt Date: 20131206
  Transmission Date: 20140711
  Serious: Yes (Other)
  Sender: FDA-Public Use
  Company Number: CA-ROCHE-1311422

PATIENT
  Age: 58 Year
  Sex: Female

DRUGS (6)
  1. XOLAIR [Suspect]
     Indication: ASTHMA
     Route: 058
     Dates: start: 20120501
  2. XOLAIR [Suspect]
     Route: 058
     Dates: start: 20131126, end: 20131126
  3. QVAR [Concomitant]
  4. SINGULAIR [Concomitant]
  5. ADVAIR [Concomitant]
  6. VENTOLIN [Concomitant]

REACTIONS (1)
  - Sarcoidosis [Unknown]
